APPROVED DRUG PRODUCT: LITFULO
Active Ingredient: RITLECITINIB TOSYLATE
Strength: EQ 50MG BASE
Dosage Form/Route: CAPSULE;ORAL
Application: N215830 | Product #001
Applicant: PFIZER INC
Approved: Jun 23, 2023 | RLD: Yes | RS: Yes | Type: RX

PATENTS:
Patent 12077533 | Expires: Dec 3, 2034
Patent 12116368 | Expires: Oct 17, 2041
Patent 9617258 | Expires: Dec 3, 2034

EXCLUSIVITY:
Code: NCE | Date: Jun 23, 2028